FAERS Safety Report 11211406 (Version 1)
Quarter: 2015Q2

REPORT INFORMATION
  Report Type: Spontaneous
  Country: US (occurrence: None)
  Receive Date: 20150619
  Receipt Date: 20150619
  Transmission Date: 20150821
  Serious: Yes (Other)
  Sender: FDA-Public Use
  Company Number: None

PATIENT
  Age: 56 Year
  Sex: Female
  Weight: 56.7 kg

DRUGS (4)
  1. CELECOXIB. [Suspect]
     Active Substance: CELECOXIB
     Indication: ARTHRALGIA
     Dosage: TAKEN BY MOUTH
  2. LEVOXYL [Concomitant]
     Active Substance: LEVOTHYROXINE SODIUM
  3. MACUHEALTH [Concomitant]
  4. PREMPRO [Concomitant]
     Active Substance: ESTROGENS, CONJUGATED\MEDROXYPROGESTERONE ACETATE

REACTIONS (7)
  - Fatigue [None]
  - Urinary tract infection [None]
  - Product substitution issue [None]
  - Pyrexia [None]
  - Headache [None]
  - Hepatic enzyme increased [None]
  - Chromaturia [None]

NARRATIVE: CASE EVENT DATE: 20150424
